FAERS Safety Report 11847540 (Version 1)
Quarter: 2015Q4

REPORT INFORMATION
  Report Type: Spontaneous
  Country: JP (occurrence: JP)
  Receive Date: 20151217
  Receipt Date: 20151217
  Transmission Date: 20160305
  Serious: Yes (Death)
  Sender: FDA-Public Use
  Company Number: PHJP1900JP000452

PATIENT
  Age: 60 Year
  Sex: Male

DRUGS (3)
  1. SOLCOSERYL [Concomitant]
     Active Substance: SOLCOSERYL
     Indication: PRODUCT USED FOR UNKNOWN INDICATION
     Dosage: UNK
     Route: 065
     Dates: start: 19800815
  2. VOLTAREN [Suspect]
     Active Substance: DICLOFENAC SODIUM
     Indication: CHEST PAIN
     Dosage: 100 MG, UNK
     Route: 048
     Dates: start: 19800708, end: 19800830
  3. FUTRAFUL [Concomitant]
     Indication: LUNG NEOPLASM MALIGNANT
     Dosage: 600 MG, UNK
     Route: 048
     Dates: start: 19800804, end: 19800920

REACTIONS (5)
  - Respiratory failure [Fatal]
  - Abdominal pain upper [Recovered/Resolved]
  - Gastric ulcer [Recovered/Resolved]
  - Abdominal discomfort [Recovered/Resolved]
  - Chest pain [Unknown]
